FAERS Safety Report 15563636 (Version 1)
Quarter: 2018Q4

REPORT INFORMATION
  Report Type: Spontaneous
  Country: US (occurrence: US)
  Receive Date: 20181029
  Receipt Date: 20181029
  Transmission Date: 20190205
  Serious: Yes (Other)
  Sender: FDA-Public Use
  Company Number: US-SA-2018SA294304

PATIENT
  Age: 61 Year
  Sex: Female

DRUGS (1)
  1. GOLD BOND ULTIMATE FIRMING NECK AND CHEST CREAM [Suspect]
     Active Substance: PETROLATUM

REACTIONS (1)
  - Product quality issue [Unknown]

NARRATIVE: CASE EVENT DATE: 20180928
